FAERS Safety Report 7522598-7 (Version None)
Quarter: 2011Q2

REPORT INFORMATION
  Report Type: 
  Country: None (occurrence: None)
  Receive Date: 20110603
  Receipt Date: 20110525
  Transmission Date: 20111010
  Serious: Yes (Hospitalization, Other)
  Sender: FDA-Public Use
  Company Number: JP-CEPHALON-2011001678

PATIENT
  Age: 69 Year
  Sex: Male

DRUGS (6)
  1. GRANISETRON HCL [Concomitant]
  2. BENDAMUSTINE HCL [Suspect]
     Indication: MANTLE CELL LYMPHOMA
     Route: 042
     Dates: start: 20110315
  3. ACYCLOVIR [Concomitant]
     Dates: start: 20110315
  4. DEXAMETHASONE [Concomitant]
     Dates: start: 20110317, end: 20110319
  5. DEXAMETHASONE [Concomitant]
     Dates: start: 20110315, end: 20110316
  6. SULFAMETHOXAZOLE AND TRIMETHOPRIM [Concomitant]
     Dates: start: 20110315

REACTIONS (14)
  - PLATELET COUNT DECREASED [None]
  - INJECTION SITE INDURATION [None]
  - NEUTROPHIL COUNT DECREASED [None]
  - WEIGHT DECREASED [None]
  - DECREASED APPETITE [None]
  - HISTIOCYTOSIS HAEMATOPHAGIC [None]
  - LYMPHOCYTE COUNT DECREASED [None]
  - ORAL CANDIDIASIS [None]
  - BLOOD PRESSURE DECREASED [None]
  - RASH [None]
  - DISSEMINATED INTRAVASCULAR COAGULATION [None]
  - OESOPHAGEAL CANDIDIASIS [None]
  - PYREXIA [None]
  - CYTOMEGALOVIRUS INFECTION [None]
